FAERS Safety Report 4590040-4 (Version None)
Quarter: 2005Q1

REPORT INFORMATION
  Report Type: 
  Country: None (occurrence: None)
  Receive Date: 20050224
  Receipt Date: 20050214
  Transmission Date: 20050727
  Serious: Yes (Other)
  Sender: FDA-Public Use
  Company Number: US-JNJFOC-20050203915

PATIENT
  Sex: Female
  Weight: 77.11 kg

DRUGS (16)
  1. REMICADE [Suspect]
     Route: 042
  2. REMICADE [Suspect]
     Indication: RHEUMATOID ARTHRITIS
     Route: 042
  3. METHOTREXATE [Concomitant]
     Indication: RHEUMATOID ARTHRITIS
  4. FORTE [Concomitant]
     Indication: OSTEOPOROSIS
  5. LIPITOR [Concomitant]
  6. PREVACID [Concomitant]
     Indication: DYSPHAGIA
  7. FOLIC ACID [Concomitant]
     Indication: RHEUMATOID ARTHRITIS
  8. CENTRUM [Concomitant]
  9. CENTRUM [Concomitant]
  10. CALCIUM GLUCONATE [Concomitant]
  11. MAGNESIUM [Concomitant]
  12. ZERTEC [Concomitant]
  13. ADVAIR [Concomitant]
  14. ADVAIR [Concomitant]
  15. FLONASE [Concomitant]
  16. FRICEDONE [Concomitant]

REACTIONS (3)
  - ENDODONTIC PROCEDURE [None]
  - KNEE ARTHROPLASTY [None]
  - TOOTH EXTRACTION [None]
